FAERS Safety Report 7164305-6 (Version None)
Quarter: 2010Q4

REPORT INFORMATION
  Report Type: 
  Country: None (occurrence: None)
  Receive Date: 20101215
  Receipt Date: 20101202
  Transmission Date: 20110411
  Serious: Yes (Other)
  Sender: FDA-Public Use
  Company Number: PHHY2010BR82226

PATIENT
  Sex: Male

DRUGS (1)
  1. FORASEQ [Suspect]

REACTIONS (2)
  - FEMUR FRACTURE [None]
  - FRACTURE REDUCTION [None]
